FAERS Safety Report 11329356 (Version 1)
Quarter: 2015Q3

REPORT INFORMATION
  Report Type: Spontaneous
  Country: FR (occurrence: None)
  Receive Date: 20150730
  Receipt Date: 20150730
  Transmission Date: 20151125
  Serious: Yes (Hospitalization)
  Sender: FDA-Public Use
  Company Number: FR-ZYDUS-008669

PATIENT
  Age: 35 Year
  Sex: Female

DRUGS (1)
  1. OMEPRAZOLE (OMEPRAZOLE) [Suspect]
     Active Substance: OMEPRAZOLE
     Indication: DYSPEPSIA

REACTIONS (10)
  - Hypocalcaemia [None]
  - Hypokalaemia [None]
  - Hypomagnesaemia [None]
  - Trousseau^s sign [None]
  - Paraesthesia [None]
  - Hypoparathyroidism [None]
  - Chvostek^s sign [None]
  - Tetany [None]
  - Urine potassium increased [None]
  - Muscle spasms [None]
